FAERS Safety Report 7258195-0 (Version None)
Quarter: 2011Q1

REPORT INFORMATION
  Report Type: 
  Country: None (occurrence: None)
  Receive Date: 20110129
  Receipt Date: 20100707
  Transmission Date: 20110831
  Serious: No
  Sender: FDA-Public Use
  Company Number: US-ABBOTT-10P-163-0655855-00

PATIENT
  Age: 40 Year
  Sex: Female

DRUGS (9)
  1. METHOTREXATE [Concomitant]
     Indication: PRODUCT USED FOR UNKNOWN INDICATION
  2. HUMIRA [Suspect]
     Indication: RHEUMATOID ARTHRITIS
     Dates: start: 20100601
  3. CALCIUM W/VITAMIN D [Concomitant]
     Indication: PRODUCT USED FOR UNKNOWN INDICATION
     Dosage: PER MD INSTRUCTIONS
  4. WELLBUTRIN [Concomitant]
     Indication: DEPRESSION
     Dosage: TWO IN AM/ONE IN AFTERNOON
  5. PREDNISONE [Concomitant]
     Indication: RHEUMATOID ARTHRITIS
     Dosage: DAILY - WEANING OFF
  6. HYDROXINE [Concomitant]
     Indication: PRODUCT USED FOR UNKNOWN INDICATION
     Dosage: AT BEDTIME; TAKES 3-4 TIMES A WEEK
  7. FOLIC ACID [Concomitant]
     Indication: PRODUCT USED FOR UNKNOWN INDICATION
     Dosage: WITH METHOTREXATE; TAKES DAILY
  8. PREDNISONE [Concomitant]
     Indication: SWELLING
  9. DEXILANT [Concomitant]
     Indication: DYSPEPSIA
     Dosage: DAILY

REACTIONS (3)
  - LIP SWELLING [None]
  - APHTHOUS STOMATITIS [None]
  - ARTHROPOD BITE [None]
